FAERS Safety Report 19931074 (Version 1)
Quarter: 2021Q4

REPORT INFORMATION
  Report Type: Report from Study
  Country: AT (occurrence: AT)
  Receive Date: 20211007
  Receipt Date: 20211007
  Transmission Date: 20220303
  Serious: Yes (Life-Threatening, Hospitalization)
  Sender: FDA-Public Use
  Company Number: AT-TEVA-2021-AT-1961048

PATIENT
  Age: 11 Year
  Sex: Male
  Weight: 41.1 kg

DRUGS (4)
  1. METHOTREXATE [Suspect]
     Active Substance: METHOTREXATE
     Indication: Osteosarcoma
     Dosage: HIGH DOSE METHOTREXATE 12 G/M2 OVER 4 HOURS
     Route: 041
  2. FUROSEMIDE [Suspect]
     Active Substance: FUROSEMIDE
     Indication: Toxicity to various agents
     Route: 065
  3. LEUCOVORIN [Suspect]
     Active Substance: LEUCOVORIN
     Indication: Toxicity to various agents
     Dosage: 2000 MG/M2 DAILY;
     Route: 065
  4. CORTISONE [Concomitant]
     Active Substance: CORTISONE
     Indication: Rash
     Route: 065

REACTIONS (8)
  - Toxicity to various agents [Recovering/Resolving]
  - Acute kidney injury [Recovered/Resolved]
  - Coagulopathy [Unknown]
  - Hepatic failure [Unknown]
  - Rash [Unknown]
  - Vomiting [Unknown]
  - Leukocytosis [Recovered/Resolved]
  - Drug ineffective [Recovered/Resolved]
